FAERS Safety Report 14279834 (Version 2)
Quarter: 2017Q4

REPORT INFORMATION
  Report Type: Not Available
  Country: None (occurrence: US)
  Receive Date: 20171212
  Receipt Date: 20171212
  Transmission Date: 20180321
  Serious: Yes (Hospitalization, Other)
  Sender: FDA-Public Use
  Company Number: US-AKORN-75254

PATIENT
  Age: 24 Year
  Sex: Female

DRUGS (1)
  1. SULFAMETHOXAZOLE TRIMETHOPRIM ORAL SUSPENSION [Suspect]
     Active Substance: SULFAMETHOXAZOLE\TRIMETHOPRIM

REACTIONS (8)
  - Rash erythematous [Recovered/Resolved]
  - Face oedema [Recovered/Resolved]
  - Lymphadenopathy [Recovered/Resolved]
  - Drug reaction with eosinophilia and systemic symptoms [Recovered/Resolved]
  - Hypotension [Recovered/Resolved]
  - Pyrexia [Recovered/Resolved]
  - Lip oedema [Recovered/Resolved]
  - Lymph node palpable [Recovered/Resolved]
